FAERS Safety Report 25336541 (Version 2)
Quarter: 2025Q2

REPORT INFORMATION
  Report Type: Report from Study
  Country: CA (occurrence: CA)
  Receive Date: 20250520
  Receipt Date: 20250523
  Transmission Date: 20250717
  Serious: Yes (Life-Threatening, Hospitalization)
  Sender: LEO PHARM
  Company Number: CA-LEO Pharma-379553

PATIENT
  Age: 47 Year
  Sex: Female

DRUGS (1)
  1. ADBRY [Suspect]
     Active Substance: TRALOKINUMAB-LDRM
     Indication: Dermatitis atopic
     Dosage: TREATMENT: ONGOING DOSAGE FORM AND STRENGTH: 150 MG/ML PRE-FILLED SYRINGE?DOSE PERTAINING TO PROVIDE
     Route: 058
     Dates: start: 20231102

REACTIONS (2)
  - Kidney infection [Unknown]
  - Hospitalisation [Unknown]
